FAERS Safety Report 12418049 (Version 1)
Quarter: 2016Q2

REPORT INFORMATION
  Report Type: Report from Study
  Country: FR (occurrence: FR)
  Receive Date: 20160531
  Receipt Date: 20160531
  Transmission Date: 20160815
  Serious: Yes (Hospitalization, Other)
  Sender: FDA-Public Use
  Company Number: FR-BRISTOL-MYERS SQUIBB COMPANY-BMS-2016-041333

PATIENT
  Age: 52 Year
  Sex: Male
  Weight: 90.5 kg

DRUGS (12)
  1. KAYEXALATE [Concomitant]
     Active Substance: SODIUM POLYSTYRENE SULFONATE
     Indication: HYPERKALAEMIA
     Dosage: 15 MG, QD
     Route: 065
     Dates: start: 20120110
  2. MIRCERA [Concomitant]
     Active Substance: METHOXY POLYETHYLENE GLYCOL-EPOETIN BETA
     Indication: HAEMODIALYSIS
     Dosage: 200 ?G, QMO
     Route: 065
     Dates: start: 201110, end: 20140329
  3. ISONIAZIDE [Concomitant]
     Active Substance: ISONIAZID
     Indication: RENAL FAILURE
     Dosage: UNK
     Route: 065
     Dates: start: 20120110, end: 20140329
  4. UVEDOSE [Concomitant]
     Active Substance: CHOLECALCIFEROL
     Indication: VITAMIN SUPPLEMENTATION
     Dosage: 1 DF, UNK
     Route: 065
     Dates: start: 20140515
  5. ENTECAVIR. [Suspect]
     Active Substance: ENTECAVIR
     Indication: HEPATITIS B
     Dosage: 0.5 MG, UNK
     Route: 065
     Dates: start: 20120329
  6. QUESTRAN [Concomitant]
     Active Substance: CHOLESTYRAMINE
     Indication: RENAL FAILURE
     Dosage: 4 G, TID
     Route: 065
     Dates: start: 20120110, end: 20140329
  7. VENOFER [Concomitant]
     Active Substance: IRON SUCROSE
     Indication: HAEMODIALYSIS
     Dosage: 300 MG, QWK
     Route: 065
     Dates: start: 201110, end: 20140329
  8. RENAGEL [Concomitant]
     Active Substance: SEVELAMER HYDROCHLORIDE
     Indication: RENAL FAILURE
     Dosage: 1600 MG, TID
     Route: 065
     Dates: start: 20120110, end: 20140329
  9. LASILIX                            /00032601/ [Concomitant]
     Active Substance: FUROSEMIDE
     Indication: PRODUCT USED FOR UNKNOWN INDICATION
     Dosage: 40 MG, UNK
     Route: 065
     Dates: start: 20140329, end: 20140515
  10. ATARAX [Concomitant]
     Active Substance: HYDROXYZINE\HYDROXYZINE HYDROCHLORIDE
     Indication: ANXIETY
     Dosage: 50 MG, QD
     Route: 065
     Dates: start: 20120110, end: 20140329
  11. BACTRIM [Concomitant]
     Active Substance: SULFAMETHOXAZOLE\TRIMETHOPRIM
     Indication: ANTIBIOTIC THERAPY
     Dosage: 1 TAB, UNK
     Route: 065
     Dates: start: 20140329
  12. INEXIUM                            /01479302/ [Concomitant]
     Active Substance: ESOMEPRAZOLE MAGNESIUM
     Indication: GASTROOESOPHAGEAL REFLUX DISEASE
     Dosage: 40 MG, UNK
     Route: 065
     Dates: start: 20140329, end: 20140515

REACTIONS (3)
  - Transplant rejection [Unknown]
  - Leukopenia [Unknown]
  - Renal transplant [Recovered/Resolved]

NARRATIVE: CASE EVENT DATE: 20140329
